FAERS Safety Report 4853500-4 (Version None)
Quarter: 2005Q4

REPORT INFORMATION
  Report Type: 
  Country: None (occurrence: None)
  Receive Date: 20051214
  Receipt Date: 20051207
  Transmission Date: 20060501
  Serious: Yes (Other)
  Sender: FDA-Public Use
  Company Number: US-BRISTOL-MYERS SQUIBB COMPANY-13207840

PATIENT
  Sex: Male

DRUGS (1)
  1. TEQUIN [Suspect]

REACTIONS (1)
  - HYPERGLYCAEMIA [None]
